FAERS Safety Report 19468836 (Version 1)
Quarter: 2021Q2

REPORT INFORMATION
  Report Type: Other
  Country: CA (occurrence: CA)
  Receive Date: 20210629
  Receipt Date: 20210629
  Transmission Date: 20210717
  Serious: Yes (Hospitalization)
  Sender: FDA-Public Use
  Company Number: CA-CELLTRION INC.-2021CA008553

PATIENT

DRUGS (1)
  1. TRUXIMA [Suspect]
     Active Substance: RITUXIMAB-ABBS
     Indication: NON-HODGKIN^S LYMPHOMA
     Dosage: 1 EVERY 28 DAYS (SINGLE?DOSE VIAL ? 10 MG/ML)
     Route: 041

REACTIONS (7)
  - Hypoaesthesia [Unknown]
  - Nausea [Unknown]
  - Chills [Unknown]
  - Rash [Unknown]
  - Throat irritation [Unknown]
  - Off label use [Unknown]
  - Pyrexia [Unknown]
